FAERS Safety Report 15991897 (Version 19)
Quarter: 2021Q1

REPORT INFORMATION
  Report Type: Spontaneous
  Country: US (occurrence: US)
  Receive Date: 20190221
  Receipt Date: 20210126
  Transmission Date: 20210419
  Serious: No
  Sender: FDA-Public Use
  Company Number: US-PFIZER INC-2019068478

PATIENT
  Age: 76 Year
  Sex: Female
  Weight: 70 kg

DRUGS (6)
  1. PREMARIN [Suspect]
     Active Substance: ESTROGENS, CONJUGATED
     Dosage: 2 G, 2X/WEEK (2G ON TUESDAY AND SATURDAY)
     Route: 067
  2. PREMARIN [Suspect]
     Active Substance: ESTROGENS, CONJUGATED
     Dosage: 1 G
  3. PREMARIN [Suspect]
     Active Substance: ESTROGENS, CONJUGATED
     Dosage: UNK (A HALF A DOSE )
  4. PREMARIN [Suspect]
     Active Substance: ESTROGENS, CONJUGATED
     Indication: URINARY TRACT INFECTION
     Dosage: 2 G, 2X/WEEK (2G ON TUESDAY AND SATURDAY)
     Route: 067
     Dates: start: 2018
  5. PREMARIN [Suspect]
     Active Substance: ESTROGENS, CONJUGATED
     Dosage: 2 G [2GRAMS VAGINALLY TWICE PER WEEK]
     Route: 067
  6. PREMARIN [Suspect]
     Active Substance: ESTROGENS, CONJUGATED
     Dosage: UNK (USING, NOT EVEN HALF A DOSE )

REACTIONS (14)
  - Intentional product use issue [Unknown]
  - Product prescribing error [Unknown]
  - Body height decreased [Unknown]
  - Weight increased [Unknown]
  - Nervousness [Unknown]
  - Urinary tract infection [Unknown]
  - Condition aggravated [Unknown]
  - Illness [Unknown]
  - Nasopharyngitis [Not Recovered/Not Resolved]
  - Drug effective for unapproved indication [Unknown]
  - Blepharitis [Unknown]
  - Hypertension [Unknown]
  - Off label use [Unknown]
  - Fibromyalgia [Unknown]

NARRATIVE: CASE EVENT DATE: 2018
